FAERS Safety Report 7372793-5 (Version None)
Quarter: 2011Q1

REPORT INFORMATION
  Report Type: 
  Country: None (occurrence: None)
  Receive Date: 20110324
  Receipt Date: 20110322
  Transmission Date: 20110831
  Serious: Yes (Hospitalization)
  Sender: FDA-Public Use
  Company Number: CH-ROCHE-767044

PATIENT
  Age: 88 Year
  Sex: Female

DRUGS (8)
  1. BONIVA [Suspect]
     Route: 048
     Dates: start: 20060101, end: 20101201
  2. ZALDIAR [Concomitant]
     Route: 048
  3. REMERON [Concomitant]
     Route: 048
  4. TRIATEC [Concomitant]
     Route: 048
  5. MYCOLOG [Concomitant]
  6. PANTOZOL [Concomitant]
     Route: 048
  7. ASPIRIN [Concomitant]
     Route: 048
  8. ARICEPT [Concomitant]

REACTIONS (2)
  - OSTEOMYELITIS [None]
  - OSTEONECROSIS [None]
